FAERS Safety Report 7440630-6 (Version None)
Quarter: 2011Q2

REPORT INFORMATION
  Report Type: 
  Country: None (occurrence: None)
  Receive Date: 20110427
  Receipt Date: 20110425
  Transmission Date: 20111010
  Serious: Yes (Hospitalization)
  Sender: FDA-Public Use
  Company Number: B0715638A

PATIENT
  Age: 41 Year
  Sex: Female

DRUGS (1)
  1. AVANDIA [Suspect]
     Indication: DIABETES MELLITUS
     Dosage: 4MG PER DAY
     Route: 048
     Dates: start: 20010504, end: 20050301

REACTIONS (5)
  - AMNESIA [None]
  - CHEST PAIN [None]
  - THYROID DISORDER [None]
  - COMPLICATED MIGRAINE [None]
  - HYPOAESTHESIA [None]
